FAERS Safety Report 6649000-1 (Version None)
Quarter: 2010Q1

REPORT INFORMATION
  Report Type: 
  Country: None (occurrence: None)
  Receive Date: 20100324
  Receipt Date: 20100314
  Transmission Date: 20100710
  Serious: Yes (Hospitalization)
  Sender: FDA-Public Use
  Company Number: DE-ABBOTT-10P-062-0624174-00

PATIENT
  Sex: Female
  Weight: 75 kg

DRUGS (4)
  1. REDUCTIL 15MG [Suspect]
     Indication: OVERWEIGHT
     Dates: start: 20090526, end: 20100201
  2. ACE INHIBITOR [Concomitant]
     Indication: DRUG USE FOR UNKNOWN INDICATION
  3. DIURETIC [Concomitant]
     Indication: DRUG USE FOR UNKNOWN INDICATION
  4. B-BLOCKER [Concomitant]
     Indication: DRUG USE FOR UNKNOWN INDICATION

REACTIONS (2)
  - MYOCARDITIS [None]
  - RESPIRATORY TRACT INFECTION [None]
